FAERS Safety Report 10561732 (Version 1)
Quarter: 2014Q4

REPORT INFORMATION
  Report Type: Spontaneous
  Country: DE (occurrence: DE)
  Receive Date: 20141103
  Receipt Date: 20141103
  Transmission Date: 20150529
  Serious: Yes (Other)
  Sender: FDA-Public Use
  Company Number: DE-THROMBOGENICS NV-SPO-2014-1377

PATIENT
  Sex: Female

DRUGS (2)
  1. JETREA [Suspect]
     Active Substance: OCRIPLASMIN
     Indication: MACULAR HOLE
     Dosage: 0.125 ML, ONE TIME DOSE
     Route: 031
     Dates: start: 20140717, end: 20140717
  2. JETREA [Suspect]
     Active Substance: OCRIPLASMIN
     Indication: VITREOUS ADHESIONS

REACTIONS (1)
  - Blindness transient [Recovered/Resolved]

NARRATIVE: CASE EVENT DATE: 201407
